FAERS Safety Report 5867091-2 (Version None)
Quarter: 2008Q3

REPORT INFORMATION
  Report Type: 
  Country: None (occurrence: None)
  Receive Date: 20080902
  Receipt Date: 20080825
  Transmission Date: 20090109
  Serious: Yes (Other)
  Sender: FDA-Public Use
  Company Number: D0058388A

PATIENT
  Age: 30 Year
  Sex: Male

DRUGS (7)
  1. KIVEXA [Suspect]
     Indication: HIV INFECTION
     Dosage: 900MG UNKNOWN
     Route: 048
     Dates: start: 20080728
  2. ADRIAMYCIN PFS [Suspect]
     Indication: BURKITT'S LYMPHOMA
     Dosage: 48MG PER DAY
     Route: 042
     Dates: start: 20080804, end: 20080805
  3. METHOTREXATE [Concomitant]
     Indication: BURKITT'S LYMPHOMA
     Dosage: 2850MG PER DAY
     Route: 042
     Dates: start: 20080801, end: 20080801
  4. VINCRISTINE [Concomitant]
     Indication: BURKITT'S LYMPHOMA
     Dosage: 2MG PER DAY
     Route: 042
     Dates: start: 20080801, end: 20080801
  5. CYCLOPHOSPHAMIDE [Concomitant]
     Indication: BURKITT'S LYMPHOMA
     Dosage: 380MG PER DAY
     Route: 042
     Dates: start: 20080801, end: 20080805
  6. SUSTIVA [Concomitant]
     Indication: HIV INFECTION
     Route: 065
     Dates: start: 20080110
  7. ATRIPLA [Concomitant]
     Indication: HIV INFECTION
     Dosage: 1045MG UNKNOWN
     Route: 048
     Dates: end: 20080101

REACTIONS (2)
  - DRUG INTERACTION [None]
  - TRANSAMINASES INCREASED [None]
